FAERS Safety Report 18705738 (Version 2)
Quarter: 2021Q1

REPORT INFORMATION
  Report Type: Other
  Country: IT (occurrence: IT)
  Receive Date: 20210106
  Receipt Date: 20210205
  Transmission Date: 20210419
  Serious: Yes (Other)
  Sender: FDA-Public Use
  Company Number: IT-ROCHE-2742974

PATIENT
  Age: 58 Year
  Sex: Female

DRUGS (7)
  1. IPILIMUMAB [Suspect]
     Active Substance: IPILIMUMAB
     Indication: LUNG NEOPLASM MALIGNANT
     Dosage: (FOR 4 CYCLES)
     Route: 042
  2. DABRAFENIB [Concomitant]
     Active Substance: DABRAFENIB
     Route: 048
  3. VEMURAFENIB. [Suspect]
     Active Substance: VEMURAFENIB
     Indication: METASTATIC MALIGNANT MELANOMA
     Dosage: FOR 3 MONTHS
     Route: 048
  4. VEMURAFENIB. [Suspect]
     Active Substance: VEMURAFENIB
     Route: 048
  5. COBIMETINIB. [Suspect]
     Active Substance: COBIMETINIB
     Indication: METASTATIC MALIGNANT MELANOMA
     Dosage: FOR 3 WEEKS THEN 1 WEEK PAUSE
     Route: 048
  6. TRAMETINIB [Concomitant]
     Active Substance: TRAMETINIB
     Route: 048
  7. AMOXICILLIN/CLAVULANIC ACID [Concomitant]
     Active Substance: AMOXICILLIN\CLAVULANIC ACID
     Dosage: 2.25 + 0.75 G/D
     Route: 048

REACTIONS (1)
  - Osteonecrosis of jaw [Recovered/Resolved]
